FAERS Safety Report 8827232 (Version 1)
Quarter: 2012Q4

REPORT INFORMATION
  Report Type: Report from Study
  Country: DE (occurrence: DE)
  Receive Date: 20121005
  Receipt Date: 20121005
  Transmission Date: 20130627
  Serious: Yes (Hospitalization)
  Sender: FDA-Public Use
  Company Number: DE-ROCHE-1142282

PATIENT
  Sex: Male
  Weight: 108 kg

DRUGS (3)
  1. PEGASYS [Suspect]
     Indication: HEPATITIS C
     Dosage: last dose prior to sae: 23 sep 2012
     Route: 058
     Dates: start: 20120805
  2. COPEGUS [Suspect]
     Indication: HEPATITIS C
     Dosage: last dose prior to sae: 24 sep 2012
     Route: 048
     Dates: start: 20120805
  3. BUPRENORPHINE HYDROCHLORIDE [Suspect]
     Indication: PRODUCT USED FOR UNKNOWN INDICATION
     Dosage: last dose prior to sae: 24 sep 2012
     Route: 060
     Dates: start: 20070610

REACTIONS (1)
  - Restlessness [Recovered/Resolved]
